FAERS Safety Report 21704601 (Version 4)
Quarter: 2023Q2

REPORT INFORMATION
  Report Type: Other
  Country: CA (occurrence: None)
  Receive Date: 20221209
  Receipt Date: 20230508
  Transmission Date: 20230722
  Serious: Yes (Other)
  Sender: FDA-Public Use
  Company Number: CA-ROCHE-3237054

PATIENT
  Sex: Female

DRUGS (2)
  1. OCREVUS [Suspect]
     Active Substance: OCRELIZUMAB
     Indication: Relapsing-remitting multiple sclerosis
     Dosage: MORE DOSAGE INFORMATION IS 300 MG AT DAY 0 AND 14, THEN 600 MG EVERY 6 MONTH
     Route: 042
     Dates: start: 20220530
  2. LACOSAMIDE [Concomitant]
     Active Substance: LACOSAMIDE

REACTIONS (4)
  - Multiple sclerosis [Unknown]
  - Nasopharyngitis [Unknown]
  - Fungal infection [Recovering/Resolving]
  - Therapy non-responder [Unknown]
